FAERS Safety Report 15610927 (Version 3)
Quarter: 2019Q1

REPORT INFORMATION
  Report Type: Spontaneous
  Country: US (occurrence: US)
  Receive Date: 20181113
  Receipt Date: 20190304
  Transmission Date: 20190417
  Serious: Yes (Other)
  Sender: FDA-Public Use
  Company Number: US-ROCHE-2054801

PATIENT
  Age: 65 Year
  Sex: Female
  Weight: 89.44 kg

DRUGS (4)
  1. LUCENTIS [Suspect]
     Active Substance: RANIBIZUMAB
     Indication: NEOVASCULAR AGE-RELATED MACULAR DEGENERATION
     Dosage: IN RIGHT EYE
     Route: 065
     Dates: start: 20171215, end: 20171216
  2. AVASTIN [Suspect]
     Active Substance: BEVACIZUMAB
     Indication: NEOVASCULAR AGE-RELATED MACULAR DEGENERATION
     Dosage: RIGHT EYE
     Route: 065
  3. LUCENTIS [Suspect]
     Active Substance: RANIBIZUMAB
     Dosage: RIGHT EYE
     Route: 065
     Dates: start: 2016, end: 20161231
  4. LEVOTHYROXINE. [Concomitant]
     Active Substance: LEVOTHYROXINE
     Dosage: ON FOR MANY YEARS
     Route: 065

REACTIONS (23)
  - Malaise [Not Recovered/Not Resolved]
  - Hyperhidrosis [Not Recovered/Not Resolved]
  - Headache [Unknown]
  - Upper limb fracture [Unknown]
  - Head discomfort [Unknown]
  - Asthenia [Not Recovered/Not Resolved]
  - Pain [Not Recovered/Not Resolved]
  - Eye pain [Unknown]
  - Hypertension [Not Recovered/Not Resolved]
  - Diarrhoea [Recovered/Resolved]
  - Injection site pain [Unknown]
  - Dyspnoea [Unknown]
  - Fall [Unknown]
  - Corneal abrasion [Unknown]
  - Hypertension [Recovered/Resolved]
  - Encephalolith [Not Recovered/Not Resolved]
  - Colitis microscopic [Recovered/Resolved]
  - Bacterial infection [Unknown]
  - Chest pain [Not Recovered/Not Resolved]
  - Incontinence [Not Recovered/Not Resolved]
  - Sinus pain [Unknown]
  - Hyperhidrosis [Unknown]
  - Asthenia [Unknown]

NARRATIVE: CASE EVENT DATE: 20171215
